FAERS Safety Report 9421902 (Version 3)
Quarter: 2013Q3

REPORT INFORMATION
  Report Type: Spontaneous
  Country: US (occurrence: US)
  Receive Date: 20130726
  Receipt Date: 20130926
  Transmission Date: 20140515
  Serious: No
  Sender: FDA-Public Use
  Company Number: US-PFIZER INC-2013215430

PATIENT
  Age: 79 Year
  Sex: Male
  Weight: 88.44 kg

DRUGS (3)
  1. NEURONTIN [Suspect]
     Indication: SCIATICA
     Dosage: 100 MG, UNK
     Route: 048
  2. NEURONTIN [Suspect]
     Indication: PAIN
     Dosage: 900 MG, UNK
  3. ALBUTEROL [Concomitant]
     Indication: CHRONIC OBSTRUCTIVE PULMONARY DISEASE
     Dosage: UNK, 3X/DAY

REACTIONS (3)
  - Intentional drug misuse [Unknown]
  - Dyspnoea [Unknown]
  - Agitation [Unknown]
